FAERS Safety Report 7495497-7 (Version None)
Quarter: 2011Q2

REPORT INFORMATION
  Report Type: 
  Country: None (occurrence: None)
  Receive Date: 20110523
  Receipt Date: 20110516
  Transmission Date: 20111010
  Serious: Yes (Hospitalization)
  Sender: FDA-Public Use
  Company Number: US-ASTRAZENECA-2011SE29077

PATIENT
  Age: 532 Month
  Sex: Male

DRUGS (13)
  1. TRAZODONE HCL [Concomitant]
     Dosage: PRN
     Dates: start: 20080620
  2. PLAVIX [Concomitant]
     Dates: start: 20080620
  3. SEROQUEL [Suspect]
     Dosage: 200 MG TK 4 TS PO QHS
     Route: 048
     Dates: start: 20050107
  4. NEURONTIN [Concomitant]
     Dates: start: 20080620
  5. TESTOSTERONE [Concomitant]
     Dates: start: 20080620
  6. ASPIRIN [Concomitant]
     Dates: start: 20080620
  7. SEROQUEL [Suspect]
     Route: 048
     Dates: start: 20040816
  8. ZOLOFT [Concomitant]
     Dates: start: 20080620
  9. SEROQUEL [Suspect]
     Route: 048
     Dates: start: 20080620
  10. LISINOPRIL [Concomitant]
     Dates: start: 20080620
  11. OXYCONTIN [Concomitant]
     Dates: start: 20080620
  12. METOPROLOL SUCCINATE [Concomitant]
     Dates: start: 20080620
  13. LISINOPRIL AND HYDROCHLOROTHIAZIDE [Concomitant]
     Indication: BLOOD PRESSURE
     Dosage: 20/25 MG TK 1 T PO QD
     Route: 048
     Dates: start: 20050207

REACTIONS (8)
  - SLEEP APNOEA SYNDROME [None]
  - GUN SHOT WOUND [None]
  - CORONARY ARTERY DISEASE [None]
  - HYPERTENSION [None]
  - TYPE 2 DIABETES MELLITUS [None]
  - HYPERCHOLESTEROLAEMIA [None]
  - ACUTE MYOCARDIAL INFARCTION [None]
  - PAIN [None]
